FAERS Safety Report 19009909 (Version 2)
Quarter: 2021Q2

REPORT INFORMATION
  Report Type: Report from Study
  Country: CO (occurrence: CO)
  Receive Date: 20210315
  Receipt Date: 20210405
  Transmission Date: 20210717
  Serious: Yes (Other)
  Sender: FDA-Public Use
  Company Number: NVSC2021CO058548

PATIENT
  Sex: Female
  Weight: 64 kg

DRUGS (6)
  1. EUTIROX [Concomitant]
     Active Substance: LEVOTHYROXINE SODIUM
     Indication: HYPOTHYROIDISM
     Dosage: 50 MG (MONDAY, WEDNESDAY, FRIDAY)
     Route: 048
  2. VITAMIN E [Concomitant]
     Active Substance: .ALPHA.-TOCOPHEROL
     Indication: PRODUCT USED FOR UNKNOWN INDICATION
     Dosage: UNK (ONE DAILY)
     Route: 048
  3. EUTIROX [Concomitant]
     Active Substance: LEVOTHYROXINE SODIUM
     Dosage: 75 MG (TUESDAY, THURSDAY, SATURDAY, SUNDAY)
     Route: 048
  4. REVOLADE [Suspect]
     Active Substance: ELTROMBOPAG OLAMINE
     Indication: IMMUNE THROMBOCYTOPENIA
     Dosage: 2 DF, QD (50 MG)
     Route: 048
     Dates: start: 202009
  5. REVOLADE [Suspect]
     Active Substance: ELTROMBOPAG OLAMINE
     Dosage: 2 DF, QD
     Route: 048
  6. CALCIUM [Concomitant]
     Active Substance: CALCIUM
     Indication: PRODUCT USED FOR UNKNOWN INDICATION
     Dosage: UNK (ONE DAILY)
     Route: 048

REACTIONS (6)
  - Platelet count decreased [Unknown]
  - Angina pectoris [Unknown]
  - Chest pain [Unknown]
  - Breast pain [Unknown]
  - Petechiae [Not Recovered/Not Resolved]
  - Gingival bleeding [Recovered/Resolved]
